FAERS Safety Report 16969823 (Version 1)
Quarter: 2019Q4

REPORT INFORMATION
  Report Type: Spontaneous
  Country: US (occurrence: US)
  Receive Date: 20190911
  Receipt Date: 20190911
  Transmission Date: 20200122
  Serious: No
  Sender: FDA-Public Use
  Company Number: None

PATIENT
  Age: 66 Year
  Sex: Female

DRUGS (4)
  1. ADVIL [Concomitant]
     Active Substance: IBUPROFEN
  2. XGEVA [Concomitant]
     Active Substance: DENOSUMAB
  3. PIQRAY [Suspect]
     Active Substance: ALPELISIB
     Indication: NEOPLASM MALIGNANT
     Route: 048
     Dates: start: 20190901
  4. FASLODEX [Concomitant]
     Active Substance: FULVESTRANT

REACTIONS (3)
  - Fatigue [None]
  - Feeling cold [None]
  - Respiratory tract infection [None]

NARRATIVE: CASE EVENT DATE: 20190911
